FAERS Safety Report 25779875 (Version 2)
Quarter: 2025Q4

REPORT INFORMATION
  Report Type: Report from Study
  Country: US (occurrence: US)
  Receive Date: 20250909
  Receipt Date: 20251010
  Transmission Date: 20260118
  Serious: Yes (Other)
  Sender: MALLINCKRODT
  Company Number: US-MALLINCKRODT-MNK202505384

PATIENT
  Age: 67 Year
  Sex: Female

DRUGS (1)
  1. CORTICOTROPIN [Suspect]
     Active Substance: CORTICOTROPIN
     Indication: Sarcoidosis
     Dosage: 80 UNITS
     Route: 058
     Dates: start: 20250601

REACTIONS (9)
  - Type 2 diabetes mellitus [Unknown]
  - Balance disorder [Recovering/Resolving]
  - Fall [Unknown]
  - Weight decreased [Unknown]
  - Injection site pain [Unknown]
  - Injection site haemorrhage [Not Recovered/Not Resolved]
  - Injection site discolouration [Unknown]
  - Injection site bruising [Unknown]
  - Rash [Unknown]

NARRATIVE: CASE EVENT DATE: 20250101
